FAERS Safety Report 7512122-7 (Version None)
Quarter: 2011Q2

REPORT INFORMATION
  Report Type: 
  Country: None (occurrence: None)
  Receive Date: 20110531
  Receipt Date: 20110519
  Transmission Date: 20111010
  Serious: Yes (Other)
  Sender: FDA-Public Use
  Company Number: US-AMGEN-USASP2011026057

PATIENT
  Age: 36 Year
  Sex: Male

DRUGS (1)
  1. ENBREL [Suspect]
     Indication: PSORIATIC ARTHROPATHY
     Dosage: 25 MG, 2 TIMES/WK

REACTIONS (6)
  - MYALGIA [None]
  - MUSCLE FATIGUE [None]
  - BURNING SENSATION [None]
  - MUSCLE TWITCHING [None]
  - PARAESTHESIA [None]
  - MALAISE [None]
